FAERS Safety Report 24449912 (Version 1)
Quarter: 2024Q4

REPORT INFORMATION
  Report Type: Spontaneous
  Country: US (occurrence: None)
  Receive Date: 20241016
  Receipt Date: 20241016
  Transmission Date: 20250115
  Serious: No
  Sender: Public
  Company Number: None

PATIENT
  Age: 73 Year
  Sex: Male
  Weight: 106 kg

DRUGS (2)
  1. NIVOLUMAB [Suspect]
     Active Substance: NIVOLUMAB
     Indication: Oncological evaluation
  2. IPILIMUMAB [Suspect]
     Active Substance: IPILIMUMAB

REACTIONS (8)
  - Adrenal insufficiency [None]
  - Coordination abnormal [None]
  - Hyperglycaemia [None]
  - Hypokalaemia [None]
  - Hyponatraemia [None]
  - Hypothyroidism [None]
  - Balance disorder [None]
  - Gait disturbance [None]

NARRATIVE: CASE EVENT DATE: 20231214
